FAERS Safety Report 19384612 (Version 2)
Quarter: 2021Q2

REPORT INFORMATION
  Report Type: Spontaneous
  Country: GB (occurrence: GB)
  Receive Date: 20210608
  Receipt Date: 20210618
  Transmission Date: 20210717
  Serious: Yes (Other)
  Sender: FDA-Public Use
  Company Number: GB-ALKEM LABORATORIES LIMITED-GB-ALKEM-2021-03141

PATIENT
  Age: 9 Year
  Sex: Male

DRUGS (3)
  1. OXYBUTYNIN HYDROCHLORIDE [Suspect]
     Active Substance: OXYBUTYNIN CHLORIDE
     Indication: HYPERTONIC BLADDER
     Dosage: 5 MILLIGRAM, BID
     Route: 048
     Dates: start: 20191001, end: 20200401
  2. SOLIFENACIN [Suspect]
     Active Substance: SOLIFENACIN
     Indication: HYPERTONIC BLADDER
     Dosage: UNK
     Route: 048
     Dates: start: 20210201, end: 20210504
  3. MELATONIN [Concomitant]
     Active Substance: MELATONIN
     Indication: ILL-DEFINED DISORDER
     Dosage: UNK
     Route: 065

REACTIONS (5)
  - Nervousness [Unknown]
  - Anxiety [Recovered/Resolved]
  - Anxiety [Recovered/Resolved]
  - Panic disorder [Unknown]
  - Depressed mood [Unknown]

NARRATIVE: CASE EVENT DATE: 20191015
